APPROVED DRUG PRODUCT: CICLOPIROX
Active Ingredient: CICLOPIROX
Strength: 1%
Dosage Form/Route: SHAMPOO;TOPICAL
Application: A090146 | Product #001 | TE Code: AT
Applicant: FOUGERA PHARMACEUTICALS INC
Approved: May 25, 2010 | RLD: No | RS: No | Type: RX